FAERS Safety Report 5888855-5 (Version None)
Quarter: 2008Q3

REPORT INFORMATION
  Report Type: 
  Country: None (occurrence: None)
  Receive Date: 20080919
  Receipt Date: 20080908
  Transmission Date: 20090109
  Serious: Yes (Other)
  Sender: FDA-Public Use
  Company Number: PHHY2008BR20695

PATIENT
  Age: 35 Year
  Sex: Female
  Weight: 107 kg

DRUGS (3)
  1. FORASEQ [Suspect]
     Indication: BRONCHITIS
     Dosage: 1 INHALATION/DAY
     Dates: start: 20080825
  2. FORASEQ [Suspect]
     Indication: BRONCHOSPASM
     Dosage: 2 INHALATIONS/DAY
     Dates: end: 20080903
  3. FLUOXETINE HYDROCHLORIDE [Concomitant]
     Indication: ANXIETY
     Dosage: 2 TABLETS/DAY
     Route: 048
     Dates: end: 20080903

REACTIONS (3)
  - ERYTHEMA [None]
  - GASTRIC BYPASS [None]
  - PRURITUS [None]
